FAERS Safety Report 7499046-9 (Version None)
Quarter: 2011Q2

REPORT INFORMATION
  Report Type: 
  Country: None (occurrence: None)
  Receive Date: 20110524
  Receipt Date: 20110502
  Transmission Date: 20111010
  Serious: Yes (Hospitalization, Other)
  Sender: FDA-Public Use
  Company Number: US-BAYER-201030171NA

PATIENT
  Age: 48 Year
  Sex: Female
  Weight: 62.585 kg

DRUGS (4)
  1. YAZ [Suspect]
     Indication: CONTRACEPTION
     Dosage: UNK
     Route: 048
     Dates: start: 20060701, end: 20090501
  2. ASCORBIC ACID [Concomitant]
  3. CLARITIN [Concomitant]
  4. YAZ [Suspect]
     Indication: PREMENSTRUAL SYNDROME

REACTIONS (4)
  - CONVULSION [None]
  - THROMBOTIC STROKE [None]
  - HYPOAESTHESIA [None]
  - CEREBRAL INFARCTION [None]
